FAERS Safety Report 6635391-4 (Version None)
Quarter: 2010Q1

REPORT INFORMATION
  Report Type: 
  Country: None (occurrence: None)
  Receive Date: 20100315
  Receipt Date: 20100302
  Transmission Date: 20100710
  Serious: Yes (Death, Life-Threatening)
  Sender: FDA-Public Use
  Company Number: NL-GENENTECH-298178

PATIENT
  Sex: Female
  Weight: 61 kg

DRUGS (1)
  1. MABTHERA [Suspect]
     Indication: LYMPHOMA
     Dosage: UNK
     Route: 065

REACTIONS (2)
  - PNEUMONIA KLEBSIELLA [None]
  - RESPIRATORY FAILURE [None]
